FAERS Safety Report 8086535-1 (Version None)
Quarter: 2012Q1

REPORT INFORMATION
  Report Type: 
  Country: None (occurrence: None)
  Receive Date: 20120128
  Receipt Date: 20110405
  Transmission Date: 20120608
  Serious: No
  Sender: FDA-Public Use
  Company Number: US-ABBOTT-11P-163-0716978-00

PATIENT
  Sex: Female
  Weight: 56.75 kg

DRUGS (3)
  1. PENTASA [Concomitant]
     Indication: CROHN'S DISEASE
  2. HUMIRA [Suspect]
     Indication: ANKYLOSING SPONDYLITIS
     Dates: start: 20100409
  3. MOBIC [Concomitant]
     Indication: PRODUCT USED FOR UNKNOWN INDICATION

REACTIONS (5)
  - ANKYLOSING SPONDYLITIS [None]
  - INCORRECT STORAGE OF DRUG [None]
  - POOR QUALITY DRUG ADMINISTERED [None]
  - OEDEMA PERIPHERAL [None]
  - ARTHRALGIA [None]
